FAERS Safety Report 8724670 (Version 3)
Quarter: 2012Q4

REPORT INFORMATION
  Report Type: 
  Country: US (occurrence: US)
  Receive Date: 20120815
  Receipt Date: 20120831
  Transmission Date: 20130627
  Serious: No
  Sender: FDA-Public Use
  Company Number: US-B.I. PHARMACEUTICALS,INC./RIDGEFIELD-2012-BP-17693BP

PATIENT
  Age: 64 None
  Sex: Female

DRUGS (10)
  1. SPIRIVA [Suspect]
     Indication: EMPHYSEMA
     Dosage: 18 mcg
     Route: 055
     Dates: start: 201104
  2. PRADAXA [Suspect]
     Indication: ATRIAL FIBRILLATION
     Route: 048
     Dates: start: 20110711, end: 20110911
  3. HYDROCORTISONE VALERATE CREAM 0.2% [Concomitant]
     Indication: PSORIASIS
  4. ADVAIR [Concomitant]
     Indication: DYSPNOEA
     Route: 055
     Dates: start: 200912
  5. BONIVA [Concomitant]
     Indication: SUPPLEMENTATION THERAPY
     Dosage: 150 mg
     Route: 048
  6. FLONASE NASAL SPRAY [Concomitant]
     Indication: HYPERSENSITIVITY
     Route: 045
  7. METRONIDAZOLE TOPICAL CREAM 7.5% [Concomitant]
     Indication: SKIN INFECTION
  8. PROVENTIL INHALER [Concomitant]
     Indication: ASTHMA
     Route: 055
  9. SINGULAIR [Concomitant]
     Indication: HYPERSENSITIVITY
     Dosage: 10 mg
     Route: 048
  10. SINGULAIR [Concomitant]
     Indication: ASTHMA

REACTIONS (5)
  - Dyspnoea [Recovered/Resolved]
  - Visual impairment [Recovered/Resolved]
  - Haemorrhage [Recovered/Resolved]
  - Dyspnoea [Recovered/Resolved]
  - Product quality issue [Not Recovered/Not Resolved]
